FAERS Safety Report 15794598 (Version 1)
Quarter: 2019Q1

REPORT INFORMATION
  Report Type: Spontaneous
  Country: US (occurrence: US)
  Receive Date: 20190107
  Receipt Date: 20190107
  Transmission Date: 20190417
  Serious: No
  Sender: FDA-Public Use
  Company Number: US-BIOGEN-2018BI00677686

PATIENT
  Age: 35 Year
  Sex: Male

DRUGS (1)
  1. TECFIDERA [Suspect]
     Active Substance: DIMETHYL FUMARATE
     Indication: MULTIPLE SCLEROSIS
     Route: 065
     Dates: start: 201804

REACTIONS (5)
  - Dizziness [Unknown]
  - Product dose omission [Unknown]
  - Ear discomfort [Unknown]
  - Headache [Unknown]
  - Hypoacusis [Unknown]

NARRATIVE: CASE EVENT DATE: 20181214
